FAERS Safety Report 13039558 (Version 4)
Quarter: 2017Q2

REPORT INFORMATION
  Report Type: Spontaneous
  Country: US (occurrence: US)
  Receive Date: 20161219
  Receipt Date: 20170605
  Transmission Date: 20170830
  Serious: No
  Sender: FDA-Public Use
  Company Number: US-ACTELION-A-NJ2016-140902

PATIENT
  Age: 73 Year
  Sex: Female
  Weight: 134 kg

DRUGS (6)
  1. UPTRAVI [Suspect]
     Active Substance: SELEXIPAG
     Dosage: 1000 MCG, BID
     Route: 048
  2. UPTRAVI [Suspect]
     Active Substance: SELEXIPAG
     Dosage: 1200 MCG, QD
     Route: 048
     Dates: start: 20160722
  3. ADCIRCA [Concomitant]
     Active Substance: TADALAFIL
  4. AMIODARONE [Concomitant]
     Active Substance: AMIODARONE
  5. DILTIAZEM. [Concomitant]
     Active Substance: DILTIAZEM
  6. UPTRAVI [Suspect]
     Active Substance: SELEXIPAG
     Indication: PULMONARY HYPERTENSION
     Dosage: 200 MCG, BID
     Route: 048
     Dates: start: 20160722

REACTIONS (10)
  - Malaise [Unknown]
  - Dyspnoea [Unknown]
  - Abdominal discomfort [Recovering/Resolving]
  - Headache [Recovered/Resolved]
  - Therapy non-responder [Unknown]
  - Nausea [Recovered/Resolved]
  - Fatigue [Unknown]
  - Influenza like illness [Unknown]
  - Thinking abnormal [Unknown]
  - Dyspepsia [Recovering/Resolving]
